FAERS Safety Report 8395982-X (Version None)
Quarter: 2012Q1

REPORT INFORMATION
  Report Type: 
  Country: None (occurrence: None)
  Receive Date: 20120323
  Receipt Date: 20110824
  Transmission Date: 20120608
  Serious: Yes (Hospitalization)
  Sender: FDA-Public Use
  Company Number: 163-21880-11072909

PATIENT
  Age: 80 Year
  Sex: Female

DRUGS (6)
  1. DIGOXIN [Concomitant]
  2. COZAAR [Concomitant]
  3. ATENOLOL [Concomitant]
  4. COUMADIN [Concomitant]
  5. REVLIMID [Suspect]
     Indication: MULTIPLE MYELOMA
     Dosage: 7.5 MG, 1 IN 2 D, PO, 7.5 MG, 1 IN 2 D, PO
     Route: 048
     Dates: start: 20110601
  6. REVLIMID [Suspect]
     Indication: MULTIPLE MYELOMA
     Dosage: 7.5 MG, 1 IN 2 D, PO, 7.5 MG, 1 IN 2 D, PO
     Route: 048
     Dates: start: 20100617, end: 20110606

REACTIONS (3)
  - PNEUMONIA [None]
  - ANAEMIA [None]
  - FATIGUE [None]
